FAERS Safety Report 9472444 (Version 1)
Quarter: 2013Q3

REPORT INFORMATION
  Report Type: Spontaneous
  Country: BR (occurrence: BR)
  Receive Date: 20130823
  Receipt Date: 20130823
  Transmission Date: 20140515
  Serious: Yes (Death, Other)
  Sender: FDA-Public Use
  Company Number: BR-PFIZER INC-2013242481

PATIENT
  Sex: Female

DRUGS (2)
  1. XALACOM [Suspect]
     Indication: GLAUCOMA
     Dosage: [3 UG LATANOPROST] / [300 UG TIMOLOL MALEATE] 2 DROPS, 1X/DAY
     Route: 047
     Dates: start: 2008
  2. XALATAN [Suspect]
     Indication: GLAUCOMA
     Dosage: UNK
     Dates: start: 2000, end: 2008

REACTIONS (4)
  - Respiratory failure [Fatal]
  - Glaucoma [Unknown]
  - Gastric cancer [Unknown]
  - Depression [Unknown]
